FAERS Safety Report 7201241-0 (Version None)
Quarter: 2010Q4

REPORT INFORMATION
  Report Type: 
  Country: None (occurrence: None)
  Receive Date: 20101229
  Receipt Date: 20101220
  Transmission Date: 20110411
  Serious: Yes (Death, Disabling)
  Sender: FDA-Public Use
  Company Number: GXKR2010GB13513

PATIENT
  Age: 69 Year
  Sex: Female

DRUGS (9)
  1. BISOPROLOL [Suspect]
     Indication: ATRIAL FIBRILLATION
     Dosage: 5 MG, UNK
     Route: 048
     Dates: start: 20100401, end: 20100502
  2. ADCAL-D3 [Concomitant]
     Route: 065
  3. CETRIZINE [Concomitant]
     Route: 065
  4. ACETYLSALICYLIC ACID SRT [Concomitant]
     Route: 065
  5. CODEINE [Concomitant]
     Route: 065
  6. FENTANYL-100 [Concomitant]
     Route: 065
  7. LANSOPRAZOLE [Concomitant]
     Route: 065
  8. PARACETAMOL [Concomitant]
     Route: 065
  9. RISEDRONIC ACID [Concomitant]
     Route: 065

REACTIONS (4)
  - OEDEMA PERIPHERAL [None]
  - SEPSIS [None]
  - SKIN ULCER [None]
  - VASOCONSTRICTION [None]
